FAERS Safety Report 8709315 (Version 2)
Quarter: 2012Q4

REPORT INFORMATION
  Report Type: 
  Country: BR (occurrence: BR)
  Receive Date: 20120806
  Receipt Date: 20121130
  Transmission Date: 20130627
  Serious: Yes (Hospitalization)
  Sender: FDA-Public Use
  Company Number: BR-ELI_LILLY_AND_COMPANY-BR201207009290

PATIENT
  Age: 35 None
  Sex: Female
  Weight: 44 kg

DRUGS (8)
  1. FORTEO [Suspect]
     Indication: OSTEOPOROSIS
     Dosage: 20 ug, qd
     Route: 058
     Dates: end: 201210
  2. ARADOIS H [Concomitant]
     Indication: HYPERTENSION
     Dosage: UNK, unknown
     Route: 065
  3. PRESSAT [Concomitant]
     Indication: HYPERTENSION
     Dosage: UNK, unknown
     Route: 065
  4. LEFLUNOMIDE [Concomitant]
     Indication: ARTHRITIS
     Dosage: UNK, unknown
     Route: 065
  5. PRELONE [Concomitant]
     Indication: ARTHRITIS
     Dosage: UNK, unknown
     Route: 065
  6. CELEBRA [Concomitant]
     Indication: ARTHRITIS
     Dosage: UNK, unknown
     Route: 065
  7. DIMORF [Concomitant]
     Indication: ARTHRITIS
     Dosage: UNK, unknown
     Route: 065
  8. TRAMAL [Concomitant]
     Indication: ARTHRITIS
     Dosage: UNK, unknown
     Route: 065

REACTIONS (5)
  - Convulsion [Recovered/Resolved]
  - Spinal cord injury [Recovering/Resolving]
  - Electrolyte imbalance [Recovering/Resolving]
  - Leukocytosis [Unknown]
  - Gastrointestinal infection [Recovered/Resolved]
